FAERS Safety Report 5838599-0 (Version None)
Quarter: 2008Q3

REPORT INFORMATION
  Report Type: 
  Country: None (occurrence: None)
  Receive Date: 20080808
  Receipt Date: 20080519
  Transmission Date: 20090109
  Serious: No
  Sender: FDA-Public Use
  Company Number: A0728550A

PATIENT
  Age: 46 Year
  Sex: Female

DRUGS (6)
  1. ALTABAX [Suspect]
     Dosage: 1APP TWICE PER DAY
     Route: 045
     Dates: start: 20080515
  2. PHISOHEX [Concomitant]
  3. HERBAL MEDICATION [Concomitant]
  4. VIT C [Concomitant]
  5. OMEGA OIL [Concomitant]
  6. VIT B [Concomitant]

REACTIONS (2)
  - FEELING ABNORMAL [None]
  - NAUSEA [None]
